FAERS Safety Report 22605009 (Version 2)
Quarter: 2023Q2

REPORT INFORMATION
  Report Type: Spontaneous
  Country: ES (occurrence: ES)
  Receive Date: 20230615
  Receipt Date: 20230629
  Transmission Date: 20230721
  Serious: Yes (Other)
  Sender: FDA-Public Use
  Company Number: None

PATIENT
  Age: 76 Year
  Sex: Male

DRUGS (11)
  1. DOCETAXEL [Interacting]
     Active Substance: DOCETAXEL
     Indication: Adenocarcinoma gastric
     Route: 065
  2. OXALIPLATIN [Interacting]
     Active Substance: OXALIPLATIN
     Indication: Adenocarcinoma gastric
     Route: 065
  3. LEUCOVORIN [Interacting]
     Active Substance: LEUCOVORIN
     Indication: Adenocarcinoma gastric
     Dosage: 200 MILLILITRE PER SQUARE METRE,DAY 1 OF 14 DAY CYCLE
     Route: 065
  4. FLUOROURACIL [Interacting]
     Active Substance: FLUOROURACIL
     Indication: Adenocarcinoma gastric
     Dosage: 2600 MILLIGRAM/SQ. METER CONTINOUS 24 HOUR INFUSION DAY 1 OF 14 DAY CYCLE
     Route: 042
  5. METAMIZOLE [Interacting]
     Active Substance: METAMIZOLE
     Indication: Pain
     Dosage: 575 MG EVERY 8 HOURS
     Route: 065
  6. ONDANSETRON [Interacting]
     Active Substance: ONDANSETRON
     Indication: Prophylaxis
     Dosage: 8 MG
     Route: 065
  7. DEXAMETHASONE [Concomitant]
     Active Substance: DEXAMETHASONE
     Indication: Prophylaxis
     Dosage: 8 MG
     Route: 065
  8. OMEPRAZOLE [Concomitant]
     Active Substance: OMEPRAZOLE
     Indication: Prophylaxis
     Dosage: 20 MG
     Route: 065
  9. FILGRASTIM [Concomitant]
     Active Substance: FILGRASTIM
     Indication: Prophylaxis
     Dosage: 300 MCG, 4 DAYS PRIOR TO START OF NEOADJUVANT SYSTEMIC CHEMOTHERAPY
     Route: 065
  10. GRANISETRON [Concomitant]
     Active Substance: GRANISETRON
     Indication: Antiemetic supportive care
     Dosage: UNK
     Route: 065
  11. ACETAMINOPHEN [Concomitant]
     Active Substance: ACETAMINOPHEN
     Indication: Pain

REACTIONS (9)
  - Toxic skin eruption [Unknown]
  - Skin exfoliation [Unknown]
  - Dysaesthesia [Unknown]
  - Neurotoxicity [Unknown]
  - Diarrhoea [Unknown]
  - Mucosal inflammation [Unknown]
  - Palmar-plantar erythrodysaesthesia syndrome [Unknown]
  - Drug interaction [Unknown]
  - Off label use [Unknown]
